FAERS Safety Report 5397927-3 (Version None)
Quarter: 2007Q3

REPORT INFORMATION
  Report Type: 
  Country: None (occurrence: None)
  Receive Date: 20070724
  Receipt Date: 20070716
  Transmission Date: 20080115
  Serious: Yes (Disabling, Other)
  Sender: FDA-Public Use
  Company Number: 0707-566

PATIENT
  Age: 71 Year
  Sex: Female
  Weight: 86.1834 kg

DRUGS (13)
  1. DUONEB [Suspect]
     Indication: EMPHYSEMA
     Dosage: 1 VL, 3XDAILY, INH
     Route: 055
     Dates: start: 20070101
  2. DUONEB [Suspect]
     Indication: EMPHYSEMA
     Dosage: 1VL, 2XDAILY AS NEEDED, INH
     Route: 055
     Dates: start: 20061103, end: 20070101
  3. ADVAIR DISKUS 100/50 [Concomitant]
  4. COMBIVENT [Concomitant]
  5. DIOVAN [Concomitant]
  6. AMBIEN [Concomitant]
  7. ZOLOFT [Concomitant]
  8. LEVOTHYROXINE SODIUM [Concomitant]
  9. FLONASE [Concomitant]
  10. POTASSIUM CHLORIDE [Concomitant]
  11. FUROSEMIDE [Concomitant]
  12. LOW-DOSE ASPIRIN [Concomitant]
  13. MECLIZINE [Concomitant]

REACTIONS (3)
  - MYASTHENIA GRAVIS [None]
  - PALPITATIONS [None]
  - SWELLING [None]
